FAERS Safety Report 8915712 (Version 1)
Quarter: 2012Q4

REPORT INFORMATION
  Report Type: 
  Country: US (occurrence: US)
  Receive Date: 20121119
  Receipt Date: 20121119
  Transmission Date: 20130627
  Serious: No
  Sender: FDA-Public Use
  Company Number: US-ASTRAZENECA-2012SE84698

PATIENT
  Age: 84 Year
  Sex: Female
  Weight: 69.4 kg

DRUGS (4)
  1. SYMBICORT [Suspect]
     Indication: BRONCHITIS
     Dosage: 160/4.5 MCG, BID
     Route: 055
     Dates: start: 201208
  2. SPIRIVA [Concomitant]
  3. NORVASC [Concomitant]
     Indication: HYPERTENSION
     Route: 048
  4. DIOVAN [Concomitant]
     Indication: HYPERTENSION
     Route: 048

REACTIONS (3)
  - Increased upper airway secretion [Not Recovered/Not Resolved]
  - Rash pruritic [Not Recovered/Not Resolved]
  - Aphonia [Not Recovered/Not Resolved]
